FAERS Safety Report 23230117 (Version 1)
Quarter: 2023Q4

REPORT INFORMATION
  Report Type: Spontaneous
  Country: US (occurrence: None)
  Receive Date: 20231124
  Receipt Date: 20231124
  Transmission Date: 20240109
  Serious: Yes (Other)
  Sender: FDA-Public Use
  Company Number: None

PATIENT
  Age: 82 Year
  Sex: Female

DRUGS (20)
  1. AMBRISENTAN [Suspect]
     Active Substance: AMBRISENTAN
     Indication: Pulmonary arterial hypertension
     Dosage: FREQUENCY : DAILY;?
     Route: 048
     Dates: start: 20230607, end: 20231031
  2. TADALAFIL [Concomitant]
     Active Substance: TADALAFIL
  3. PRADAXA [Concomitant]
     Active Substance: DABIGATRAN ETEXILATE MESYLATE
  4. METOLAZONE [Concomitant]
     Active Substance: METOLAZONE
  5. TORSEMIDE [Concomitant]
     Active Substance: TORSEMIDE
  6. GABAPENTIN [Concomitant]
     Active Substance: GABAPENTIN
  7. CYMBALTA [Concomitant]
     Active Substance: DULOXETINE HYDROCHLORIDE
  8. ALBUTEROL SULFATE [Concomitant]
     Active Substance: ALBUTEROL SULFATE
  9. ALVESCO HFA [Concomitant]
  10. TORSEMIDE [Concomitant]
     Active Substance: TORSEMIDE
  11. GLIPIZIDE [Concomitant]
     Active Substance: GLIPIZIDE
  12. HUMULIN N [Concomitant]
     Active Substance: INSULIN HUMAN
  13. PANTOPRAZOLE [Concomitant]
     Active Substance: PANTOPRAZOLE
  14. SPIRONOLACTONE [Concomitant]
     Active Substance: SPIRONOLACTONE
  15. MIRTAZAPINE [Concomitant]
     Active Substance: MIRTAZAPINE
  16. ATORVASTATIN [Concomitant]
     Active Substance: ATORVASTATIN
  17. STIOLTO RESPIMAT [Concomitant]
     Active Substance: OLODATEROL HYDROCHLORIDE\TIOTROPIUM BROMIDE MONOHYDRATE
  18. LOSARTAN [Concomitant]
     Active Substance: LOSARTAN
  19. FERROUS SULFATE [Concomitant]
     Active Substance: FERROUS SULFATE
  20. OXYGEN [Concomitant]
     Active Substance: OXYGEN

REACTIONS (2)
  - Anaemia [None]
  - Cardiac failure congestive [None]

NARRATIVE: CASE EVENT DATE: 20231031
